FAERS Safety Report 16363623 (Version 1)
Quarter: 2019Q2

REPORT INFORMATION
  Report Type: Other
  Country: DE (occurrence: DE)
  Receive Date: 20190528
  Receipt Date: 20190528
  Transmission Date: 20190711
  Serious: Yes (Hospitalization)
  Sender: FDA-Public Use
  Company Number: DE-B. BRAUN MEDICAL INC.-2067498

PATIENT
  Age: 32 Year
  Weight: 48 kg

DRUGS (11)
  1. DOPAMINE [Concomitant]
     Active Substance: DOPAMINE\DOPAMINE HYDROCHLORIDE
     Route: 042
  2. HESPAN [Suspect]
     Active Substance: HETASTARCH\SODIUM CHLORIDE
     Indication: HAEMOCONCENTRATION
  3. GLUCOSE 5% [Concomitant]
     Active Substance: DEXTROSE
  4. PREDALON [Concomitant]
     Active Substance: CHORIOGONADOTROPIN ALFA
  5. MONOEMBOLEX 0.3-LOW-MOLECULAR WEIGHT HEPARIN [Concomitant]
  6. LASIX [Concomitant]
     Active Substance: FUROSEMIDE
  7. SINGLE-SHOT INFUSION HUMAN ALBUMIN [Concomitant]
  8. GONADOTROPIN-RELEASING HORMONE -ANALOGON [Concomitant]
  9. FERTINORM ( FOLLICLE STIMULATING HORMONE) [Concomitant]
  10. NORMAL SALINE INFUSION 0.9% [Concomitant]
  11. HUMAN SERUM ALBUMIN 20% [Concomitant]

REACTIONS (4)
  - Ovarian hyperstimulation syndrome [None]
  - Headache [None]
  - Dyspnoea [None]
  - Pleural effusion [None]
